FAERS Safety Report 7152623-7 (Version None)
Quarter: 2010Q4

REPORT INFORMATION
  Report Type: 
  Country: None (occurrence: None)
  Receive Date: 20101208
  Receipt Date: 20101208
  Transmission Date: 20110411
  Serious: Yes (Hospitalization, Disabling)
  Sender: FDA-Public Use
  Company Number: None

PATIENT
  Age: 31 Year
  Sex: Female
  Weight: 60.782 kg

DRUGS (1)
  1. FLAGYL [Suspect]
     Indication: PELVIC INFLAMMATORY DISEASE
     Dosage: 500 MG 2X 7DAY ORAL
     Route: 048
     Dates: start: 20101118

REACTIONS (3)
  - DYSGEUSIA [None]
  - PRODUCT QUALITY ISSUE [None]
  - TABLET ISSUE [None]
